FAERS Safety Report 17631643 (Version 17)
Quarter: 2022Q3

REPORT INFORMATION
  Report Type: Report from Study
  Country: US (occurrence: US)
  Receive Date: 20200406
  Receipt Date: 20220725
  Transmission Date: 20221027
  Serious: Yes (Hospitalization, Other)
  Sender: FDA-Public Use
  Company Number: US-SHIRE-US202012522

PATIENT
  Age: 70 Year
  Sex: Female
  Weight: 134 kg

DRUGS (30)
  1. HUMAN IMMUNOGLOBULIN G [Suspect]
     Active Substance: HUMAN IMMUNOGLOBULIN G
     Indication: Immunodeficiency
     Dosage: 36 GRAM, Q2WEEKS
     Route: 058
     Dates: start: 20200331
  2. HUMAN IMMUNOGLOBULIN G [Suspect]
     Active Substance: HUMAN IMMUNOGLOBULIN G
     Indication: Immunodeficiency common variable
     Dosage: 36 GRAM, Q2WEEKS
     Route: 058
     Dates: start: 20200402
  3. COVID-19 VACCINE NOS [Suspect]
     Active Substance: COVID-19 VACCINE NOS
     Indication: Product used for unknown indication
     Dosage: UNK
     Route: 065
  4. INFLUENZA VIRUS VACCINE [Suspect]
     Active Substance: INFLUENZA VIRUS VACCINE
     Indication: Product used for unknown indication
     Dosage: UNK
     Route: 065
  5. ACETAMINOPHEN [Concomitant]
     Active Substance: ACETAMINOPHEN
     Route: 065
  6. DIPHENHYDRAMINE [Concomitant]
     Active Substance: DIPHENHYDRAMINE
     Route: 065
  7. EPINEPHRINE [Concomitant]
     Active Substance: EPINEPHRINE
     Route: 065
  8. Lmx [Concomitant]
     Route: 065
  9. TRAVATAN Z [Concomitant]
     Active Substance: TRAVOPROST
     Route: 065
  10. PRAVASTATIN SODIUM [Concomitant]
     Active Substance: PRAVASTATIN SODIUM
     Route: 065
  11. ASPIRIN [Concomitant]
     Active Substance: ASPIRIN
     Route: 065
  12. NIFEDIPINE [Concomitant]
     Active Substance: NIFEDIPINE
     Route: 065
  13. VITAMINS [Concomitant]
     Active Substance: VITAMINS
     Route: 065
  14. ALLEGRA [Concomitant]
     Active Substance: FEXOFENADINE HYDROCHLORIDE
     Route: 065
  15. CALCIUM [Concomitant]
     Active Substance: CALCIUM
     Route: 065
  16. VITAMIN D3 [Concomitant]
     Active Substance: CHOLECALCIFEROL
     Route: 065
  17. VITAMIN B12 [Concomitant]
     Active Substance: CYANOCOBALAMIN
     Indication: Product used for unknown indication
  18. FOSAMAX [Concomitant]
     Active Substance: ALENDRONATE SODIUM
     Dosage: UNK
     Route: 065
  19. ATIVAN [Concomitant]
     Active Substance: LORAZEPAM
     Dosage: UNK
     Route: 065
  20. HYDROCHLOROTHIAZIDE\TRIAMTERENE [Concomitant]
     Active Substance: HYDROCHLOROTHIAZIDE\TRIAMTERENE
     Dosage: UNK
     Route: 065
  21. CALCIUM CARBONATE\CHOLECALCIFEROL [Concomitant]
     Active Substance: CALCIUM CARBONATE\CHOLECALCIFEROL
     Dosage: UNK
     Route: 065
  22. MINERALS\VITAMINS [Concomitant]
     Active Substance: MINERALS\VITAMINS
     Indication: Product used for unknown indication
     Dosage: UNK
     Route: 065
  23. ATORVASTATIN [Concomitant]
     Active Substance: ATORVASTATIN
     Dosage: UNK
     Route: 065
  24. NABUMETONE [Concomitant]
     Active Substance: NABUMETONE
     Dosage: UNK
     Route: 065
  25. POTASSIUM [Concomitant]
     Active Substance: POTASSIUM
     Dosage: UNK
     Route: 065
  26. ASPIRIN [Concomitant]
     Active Substance: ASPIRIN
     Route: 065
  27. PRAVASTATIN SODIUM [Concomitant]
     Active Substance: PRAVASTATIN SODIUM
     Route: 065
  28. ALENDRONATE SODIUM [Concomitant]
     Active Substance: ALENDRONATE SODIUM
     Route: 065
  29. VITAMIN B [Concomitant]
     Active Substance: VITAMIN B
     Route: 065
  30. ASPIRIN [Concomitant]
     Active Substance: ASPIRIN

REACTIONS (30)
  - Cellulitis [Unknown]
  - Venous occlusion [Unknown]
  - Glaucoma [Unknown]
  - Infusion related reaction [Unknown]
  - Eye infection [Unknown]
  - Renal pain [Unknown]
  - Feeling abnormal [Unknown]
  - COVID-19 immunisation [Unknown]
  - Immunisation reaction [Unknown]
  - Localised infection [Unknown]
  - Sinusitis [Unknown]
  - Laryngitis [Unknown]
  - Multiple allergies [Unknown]
  - Sinus headache [Unknown]
  - Stress [Unknown]
  - Fear [Unknown]
  - Nasal congestion [Unknown]
  - Infusion site pruritus [Recovered/Resolved]
  - Infusion site erythema [Recovered/Resolved]
  - Infusion site bruising [Unknown]
  - Headache [Unknown]
  - Malaise [Unknown]
  - Cough [Unknown]
  - Oropharyngeal pain [Unknown]
  - Pain [Not Recovered/Not Resolved]
  - Blister [Unknown]
  - Insurance issue [Unknown]
  - Therapy interrupted [Unknown]
  - Skin ulcer [Unknown]
  - Product dose omission issue [Unknown]

NARRATIVE: CASE EVENT DATE: 20200924
